FAERS Safety Report 9931784 (Version 1)
Quarter: 2014Q1

REPORT INFORMATION
  Report Type: Spontaneous
  Country: US (occurrence: None)
  Receive Date: 20140227
  Receipt Date: 20140227
  Transmission Date: 20141002
  Serious: Yes (Life-Threatening, Hospitalization, Disabling)
  Sender: FDA-Public Use
  Company Number: None

PATIENT
  Age: 58 Year
  Sex: Male

DRUGS (1)
  1. ANDROGEL 1% [Suspect]
     Dosage: 4 PUMPS DAILY ?APPLIED TO A SURFACE, USUALLY THE SKIN

REACTIONS (1)
  - Cerebrovascular accident [None]
